FAERS Safety Report 15128394 (Version 1)
Quarter: 2018Q3

REPORT INFORMATION
  Report Type: Spontaneous
  Country: DE (occurrence: DE)
  Receive Date: 20180711
  Receipt Date: 20180711
  Transmission Date: 20181010
  Serious: Yes (Death)
  Sender: FDA-Public Use
  Company Number: DE-ROCHE-2150973

PATIENT
  Sex: Male
  Weight: 76 kg

DRUGS (3)
  1. MYCOPHENOLATE MOFETIL. [Suspect]
     Active Substance: MYCOPHENOLATE MOFETIL
     Indication: LUNG TRANSPLANT
     Dosage: 1 MG, BID
     Route: 048
     Dates: start: 20131008, end: 20140502
  2. CICLOSPORIN [Suspect]
     Active Substance: CYCLOSPORINE
     Indication: LUNG TRANSPLANT
     Dosage: 150 MG, BID
     Route: 048
     Dates: start: 20131008, end: 20140502
  3. EVEROLIMUS. [Suspect]
     Active Substance: EVEROLIMUS
     Indication: HEART TRANSPLANT
     Dosage: UNK
     Route: 065

REACTIONS (1)
  - Haemorrhage [Fatal]

NARRATIVE: CASE EVENT DATE: 20180502
